FAERS Safety Report 12396983 (Version 1)
Quarter: 2016Q2

REPORT INFORMATION
  Report Type: Spontaneous
  Country: US (occurrence: US)
  Receive Date: 20160524
  Receipt Date: 20160524
  Transmission Date: 20160815
  Serious: No
  Sender: FDA-Public Use
  Company Number: US-BIOGEN-2016BI00221967

PATIENT

DRUGS (1)
  1. TYSABRI [Suspect]
     Active Substance: NATALIZUMAB
     Indication: MULTIPLE SCLEROSIS
     Route: 042

REACTIONS (7)
  - Gait disturbance [Unknown]
  - Weight increased [Unknown]
  - Temperature intolerance [Unknown]
  - Insomnia [Unknown]
  - Joint stiffness [Unknown]
  - General physical health deterioration [Unknown]
  - Adverse reaction [Unknown]
